FAERS Safety Report 25723103 (Version 1)
Quarter: 2025Q3

REPORT INFORMATION
  Report Type: Report from Study
  Country: BR (occurrence: BR)
  Receive Date: 20250825
  Receipt Date: 20250825
  Transmission Date: 20251020
  Serious: Yes (Other)
  Sender: UCB
  Company Number: BR-UCBSA-2025048744

PATIENT
  Sex: Male
  Weight: 76 kg

DRUGS (1)
  1. BIMEKIZUMAB [Suspect]
     Active Substance: BIMEKIZUMAB
     Indication: Psoriasis
     Dosage: 320 MILLIGRAM, EV 8 WEEKS
     Route: 058
     Dates: start: 20250226

REACTIONS (2)
  - Laparoscopic surgery [Recovering/Resolving]
  - Oesophageal achalasia [Recovering/Resolving]

NARRATIVE: CASE EVENT DATE: 20250101
